FAERS Safety Report 24584253 (Version 1)
Quarter: 2024Q4

REPORT INFORMATION
  Report Type: Spontaneous
  Country: US (occurrence: US)
  Receive Date: 20241106
  Receipt Date: 20241106
  Transmission Date: 20250115
  Serious: Yes (Congenital Anomaly, Other)
  Sender: MYLAN
  Company Number: US-MYLANLABS-2024M1098963

PATIENT

DRUGS (1)
  1. INDOMETHACIN [Suspect]
     Active Substance: INDOMETHACIN
     Indication: Product used for unknown indication
     Dosage: UNK
     Route: 064

REACTIONS (4)
  - Ductus arteriosus stenosis foetal [Recovering/Resolving]
  - Hydrops foetalis [Recovering/Resolving]
  - Tricuspid valve incompetence [Recovering/Resolving]
  - Foetal exposure during pregnancy [Recovered/Resolved]
